FAERS Safety Report 5908976-8 (Version None)
Quarter: 2008Q4

REPORT INFORMATION
  Report Type: 
  Country: None (occurrence: None)
  Receive Date: 20081006
  Receipt Date: 20081002
  Transmission Date: 20090506
  Serious: No
  Sender: FDA-Public Use
  Company Number: US-ASTRAZENECA-2006UW10803

PATIENT
  Age: 408 Month
  Sex: Female

DRUGS (3)
  1. SEROQUEL [Suspect]
     Indication: ANXIETY
     Dosage: 100 MG TO 300 MG
     Route: 048
     Dates: start: 20011201, end: 20040601
  2. SEROQUEL [Suspect]
     Indication: DEPRESSION
     Dosage: 100 MG TO 300 MG
     Route: 048
     Dates: start: 20011201, end: 20040601
  3. ZYPREXA [Suspect]

REACTIONS (1)
  - DIABETES MELLITUS [None]
